FAERS Safety Report 9031821 (Version 2)
Quarter: 2014Q2

REPORT INFORMATION
  Report Type: Spontaneous
  Country: ES (occurrence: ES)
  Receive Date: 20130124
  Receipt Date: 20140414
  Transmission Date: 20141212
  Serious: Yes (Hospitalization, Other)
  Sender: FDA-Public Use
  Company Number: ES-VERTEX PHARMACEUTICALS INC.-2013-001133

PATIENT
  Age: 52 Year
  Sex: Male
  Weight: 92 kg

DRUGS (3)
  1. INCIVO [Suspect]
     Indication: HEPATITIS C
     Dosage: 750 MG, TID
     Route: 048
     Dates: start: 20121128, end: 20130116
  2. PEGASYS [Concomitant]
     Indication: HEPATITIS C
     Dosage: 180 ?G, QW
     Route: 058
     Dates: start: 20121128, end: 20130112
  3. COPEGUS [Concomitant]
     Indication: HEPATITIS C
     Dosage: 600 MG, BID
     Route: 048
     Dates: start: 20121128, end: 20130116

REACTIONS (2)
  - Peritonitis bacterial [Recovered/Resolved]
  - Disorientation [Recovered/Resolved]
